FAERS Safety Report 12199523 (Version 2)
Quarter: 2016Q2

REPORT INFORMATION
  Report Type: Spontaneous
  Country: US (occurrence: US)
  Receive Date: 20160322
  Receipt Date: 20160426
  Transmission Date: 20160815
  Serious: Yes (Hospitalization, Other)
  Sender: FDA-Public Use
  Company Number: US-ASTRAZENECA-2016SE28766

PATIENT
  Age: 891 Month
  Sex: Female
  Weight: 90.3 kg

DRUGS (6)
  1. BYETTA [Suspect]
     Active Substance: EXENATIDE
     Indication: DIABETES MELLITUS
     Dosage: 0.25 MG/ML, 5 MCG TWO TIMES A DAY
     Route: 058
     Dates: start: 20070314
  2. LOW DOSE BABY ASA [Concomitant]
     Indication: CARDIAC DISORDER
     Route: 048
  3. GLIPIZIDE. [Concomitant]
     Active Substance: GLIPIZIDE
     Dates: start: 2003
  4. METFORMIN [Concomitant]
     Active Substance: METFORMIN HYDROCHLORIDE
     Indication: DIABETES MELLITUS
     Route: 048
  5. GLUCOPHAGE ^BRISTOL-MYERS SQUIBB^ [Concomitant]
     Dates: start: 2004
  6. BYETTA [Suspect]
     Active Substance: EXENATIDE
     Indication: DIABETES MELLITUS
     Dosage: 250 MCG / 1.2 ML, TWO TIMES A DAY
     Route: 058
     Dates: end: 20160310

REACTIONS (10)
  - Weight decreased [Unknown]
  - Gingival cyst [Unknown]
  - Blood glucose increased [Unknown]
  - Mouth swelling [Unknown]
  - Injection site haemorrhage [Unknown]
  - Limb discomfort [Unknown]
  - Oral pain [Unknown]
  - Product quality issue [Unknown]
  - Cough [Unknown]
  - Therapy cessation [Unknown]

NARRATIVE: CASE EVENT DATE: 200703
